FAERS Safety Report 8525212-7 (Version None)
Quarter: 2012Q3

REPORT INFORMATION
  Report Type: 
  Country: None (occurrence: None)
  Receive Date: 20120720
  Receipt Date: 20120716
  Transmission Date: 20120928
  Serious: Yes (Disabling, Other)
  Sender: FDA-Public Use
  Company Number: PHHY2011US33753

PATIENT
  Sex: Female
  Weight: 77.1 kg

DRUGS (11)
  1. GILENYA [Suspect]
     Dosage: 0.5 MG, QD
     Route: 048
     Dates: start: 20110420
  2. VENLAFAXINE [Concomitant]
     Dosage: 75 MG, DAILY
     Route: 048
  3. ALBUTEROL [Concomitant]
     Indication: DYSPNOEA
     Dosage: 2 DF, Q2H
  4. GILENYA [Suspect]
     Indication: MULTIPLE SCLEROSIS
     Dosage: 0.5 MG, QD
     Route: 048
     Dates: start: 20110415
  5. CALCIUM [Concomitant]
     Dosage: 500 MG, BID
     Route: 048
  6. FLONASE [Concomitant]
     Indication: HYPERSENSITIVITY
     Dosage: 1 DF, BID
     Route: 045
  7. GILENYA [Suspect]
     Dosage: 0.5 MG, QD
     Route: 048
     Dates: start: 20110429, end: 20110509
  8. ZYRTEC [Concomitant]
     Dosage: 1 DF, QD
     Route: 048
  9. DIAZEPAM [Concomitant]
     Indication: DIZZINESS
     Dosage: 5 MG, PRN
     Route: 048
  10. VITAMIN D [Concomitant]
     Indication: VITAMIN D DEFICIENCY
     Dosage: 50000 IU, QW
  11. OLOPATADINE [Concomitant]
     Dosage: UNK UKN, UNK

REACTIONS (11)
  - HEADACHE [None]
  - AGEUSIA [None]
  - NAUSEA [None]
  - PYREXIA [None]
  - ASTHENIA [None]
  - DYSSTASIA [None]
  - DIZZINESS [None]
  - INSOMNIA [None]
  - FATIGUE [None]
  - MEMORY IMPAIRMENT [None]
  - HEART RATE DECREASED [None]
